FAERS Safety Report 25899899 (Version 1)
Quarter: 2025Q4

REPORT INFORMATION
  Report Type: Spontaneous
  Country: BR (occurrence: BR)
  Receive Date: 20251009
  Receipt Date: 20251009
  Transmission Date: 20260118
  Serious: Yes (Other)
  Sender: ASTELLAS
  Company Number: BR-ASTELLAS-2025-AER-053423

PATIENT
  Age: 88 Year
  Sex: Female

DRUGS (1)
  1. MIRABEGRON [Suspect]
     Active Substance: MIRABEGRON
     Indication: Urinary incontinence
     Route: 065

REACTIONS (4)
  - Spinal fracture [Unknown]
  - Accident [Unknown]
  - Gastrointestinal disorder [Unknown]
  - Drug ineffective [Unknown]
